FAERS Safety Report 9553930 (Version 1)
Quarter: 2013Q3

REPORT INFORMATION
  Report Type: Spontaneous
  Country: US (occurrence: US)
  Receive Date: 20130925
  Receipt Date: 20130925
  Transmission Date: 20140515
  Serious: Yes (Other)
  Sender: FDA-Public Use
  Company Number: US-TEVA-434234USA

PATIENT
  Sex: Female

DRUGS (4)
  1. HYDROXYZINE [Suspect]
     Indication: URTICARIA
  2. LEVOCETIRIZINE DIHYDROCHLORIDE [Suspect]
     Indication: URTICARIA
  3. MONTELUKAST [Suspect]
     Indication: URTICARIA
     Dosage: 10 MILLIGRAM DAILY;
  4. DESLORATADINE [Suspect]
     Indication: URTICARIA

REACTIONS (1)
  - Coeliac disease [Unknown]
